FAERS Safety Report 10654666 (Version 1)
Quarter: 2014Q4

REPORT INFORMATION
  Report Type: Spontaneous
  Country: US (occurrence: US)
  Receive Date: 20141216
  Receipt Date: 20141216
  Transmission Date: 20150529
  Serious: No
  Sender: FDA-Public Use
  Company Number: US-BAYER-2014-183083

PATIENT
  Age: 34 Year
  Sex: Male
  Weight: 75 kg

DRUGS (18)
  1. MYAMBUTOL [Concomitant]
     Active Substance: ETHAMBUTOL HYDROCHLORIDE
     Indication: DISSEMINATED TUBERCULOSIS
     Dosage: DAILY DOSE 1200 MG
     Route: 048
  2. ALLOPURINOL. [Concomitant]
     Active Substance: ALLOPURINOL
     Indication: GOUT
     Dosage: 100 MG, BID
     Route: 048
  3. PROGRAF [Concomitant]
     Active Substance: TACROLIMUS\TACROLIMUS ANHYDROUS
     Indication: IMMUNOSUPPRESSION
     Dosage: 3 MG, QD, EVERY MORNING
     Route: 048
  4. COLCHICINE. [Concomitant]
     Active Substance: COLCHICINE
     Indication: GOUT
     Dosage: 0.3 MG, QOD
     Route: 048
  5. TYLENOL WITH CODEINE [Concomitant]
     Active Substance: ACETAMINOPHEN\CODEINE PHOSPHATE
     Indication: GOUT
     Dosage: EVERY SIX HOURS, PRN
     Route: 048
  6. SODIUM BICARBONATE. [Concomitant]
     Active Substance: SODIUM BICARBONATE
     Indication: HYPERURICAEMIA
     Dosage: 150 MEQ IN DEXTROSE 5% IN WATER (D5W) AT 75 ML/HR
     Route: 042
  7. DEXTROSE. [Concomitant]
     Active Substance: DEXTROSE
     Indication: HYPERURICAEMIA
     Dosage: SODIUM BICARBONATE 150 MEQ IN DEXTROSE 5% IN WATER (D5W) AT 75 ML/HR
     Route: 042
  8. PYRIDOXINE [Concomitant]
     Active Substance: PYRIDOXINE
     Indication: SUPPLEMENTATION THERAPY
     Dosage: DAILY DOSE 25 MG
     Route: 048
  9. PROGRAF [Concomitant]
     Active Substance: TACROLIMUS\TACROLIMUS ANHYDROUS
     Indication: RENAL TRANSPLANT
     Dosage: 4 MG, QD, EVERY EVENING
     Route: 048
  10. RASBURICASE [Concomitant]
     Active Substance: RASBURICASE
     Indication: HYPERURICAEMIA
     Dosage: 7.5 MG, ONCE
     Route: 042
  11. CITRIC ACID W/SODIUM CITRATE [Concomitant]
     Dosage: 15 ML, BID, 334 MG/500 MG PER 5-ML SOLUTION
     Route: 048
  12. AVELOX [Suspect]
     Active Substance: MOXIFLOXACIN HYDROCHLORIDE
     Indication: DISSEMINATED TUBERCULOSIS
     Dosage: DAILY DOSE 400 MG
     Route: 048
  13. IRON POLYMALTOSE [Concomitant]
     Active Substance: IRON POLYMALTOSE
     Dosage: 150 MG, BID
     Route: 048
  14. MYCOBUTIN [Concomitant]
     Active Substance: RIFABUTIN
     Indication: DISSEMINATED TUBERCULOSIS
     Dosage: DAILY DOSE 300 MG
     Route: 048
  15. ISONIAZID. [Concomitant]
     Active Substance: ISONIAZID
     Indication: DISSEMINATED TUBERCULOSIS
     Dosage: DAILY DOSE 300 MG
     Route: 048
  16. PYRAZINAMIDE. [Concomitant]
     Active Substance: PYRAZINAMIDE
     Indication: DISSEMINATED TUBERCULOSIS
     Dosage: DAILY DOSE 1500 MG
     Route: 048
  17. MORPHINE SULFATE. [Concomitant]
     Active Substance: MORPHINE SULFATE
     Indication: GOUT
     Dosage: 4 MG, QID, PRN
     Route: 030
  18. FEBUXOSTAT. [Concomitant]
     Active Substance: FEBUXOSTAT
     Indication: GOUT
     Dosage: DAILY DOSE 40 MG
     Route: 048

REACTIONS (1)
  - Product use issue [None]
